FAERS Safety Report 8308504-6 (Version None)
Quarter: 2012Q2

REPORT INFORMATION
  Report Type: 
  Country: None (occurrence: None)
  Receive Date: 20120424
  Receipt Date: 20120209
  Transmission Date: 20120825
  Serious: Yes (Other)
  Sender: FDA-Public Use
  Company Number: US-BRISTOL-MYERS SQUIBB COMPANY-16358129

PATIENT
  Sex: Female

DRUGS (7)
  1. TAXOL [Suspect]
     Indication: BREAST CANCER METASTATIC
  2. CYTOXAN [Suspect]
     Indication: BREAST CANCER METASTATIC
  3. LAPATINIB [Suspect]
     Indication: BREAST CANCER METASTATIC
  4. CARBOPLATIN [Suspect]
     Indication: BREAST CANCER METASTATIC
  5. HERCEPTIN [Suspect]
     Indication: BREAST CANCER METASTATIC
  6. XELODA [Suspect]
     Indication: BREAST CANCER METASTATIC
  7. GEMZAR [Suspect]
     Indication: BREAST CANCER METASTATIC

REACTIONS (1)
  - NEOPLASM MALIGNANT [None]
